FAERS Safety Report 9170750 (Version 2)
Quarter: 2013Q2

REPORT INFORMATION
  Report Type: Spontaneous
  Country: US (occurrence: US)
  Receive Date: 20130319
  Receipt Date: 20130417
  Transmission Date: 20140414
  Serious: No
  Sender: FDA-Public Use
  Company Number: US-PFIZER INC-2013089148

PATIENT
  Age: 40 Year
  Sex: Male
  Weight: 115.65 kg

DRUGS (2)
  1. LYRICA [Suspect]
     Indication: DIABETIC NEUROPATHY
     Dosage: 75 MG, 3X/DAY
     Route: 048
     Dates: start: 201210, end: 201303
  2. NEURONTIN [Concomitant]
     Dosage: 600 MG, 3X/DAY

REACTIONS (4)
  - Neuralgia [Unknown]
  - Pain in extremity [Unknown]
  - Pain [Unknown]
  - Malaise [Unknown]
